FAERS Safety Report 8376513-7 (Version None)
Quarter: 2012Q2

REPORT INFORMATION
  Report Type: 
  Country: None (occurrence: None)
  Receive Date: 20120522
  Receipt Date: 20120514
  Transmission Date: 20120825
  Serious: Yes (Other)
  Sender: FDA-Public Use
  Company Number: US-ASTRAZENECA-2012SE31090

PATIENT
  Age: 58 Year
  Sex: Male

DRUGS (1)
  1. SEROQUEL XR [Suspect]
     Route: 048

REACTIONS (6)
  - HEPATITIS C [None]
  - RED BLOOD CELL COUNT DECREASED [None]
  - CEREBROVASCULAR ACCIDENT [None]
  - URETHRAL NEOPLASM [None]
  - BLADDER NEOPLASM [None]
  - LIVER INJURY [None]
